FAERS Safety Report 15980002 (Version 1)
Quarter: 2019Q1

REPORT INFORMATION
  Report Type: Other
  Country: GB (occurrence: GB)
  Receive Date: 20190219
  Receipt Date: 20190219
  Transmission Date: 20190418
  Serious: Yes (Life-Threatening, Hospitalization, Disabling, Other)
  Sender: FDA-Public Use
  Company Number: GB-CELLTRION INC.-2019GB018632

PATIENT

DRUGS (1)
  1. INFLIXIMAB (UNKNOWN) [Suspect]
     Active Substance: INFLIXIMAB
     Indication: CROHN^S DISEASE
     Dosage: UNK
     Route: 051
     Dates: start: 20160909, end: 20161203

REACTIONS (3)
  - Hypersensitivity [Recovered/Resolved]
  - Pericarditis tuberculous [Recovered/Resolved with Sequelae]
  - Cardiac tamponade [Recovered/Resolved with Sequelae]

NARRATIVE: CASE EVENT DATE: 20161114
